FAERS Safety Report 8818069 (Version 1)
Quarter: 2012Q4

REPORT INFORMATION
  Report Type: 
  Country: GB (occurrence: GB)
  Receive Date: 20121001
  Receipt Date: 20121001
  Transmission Date: 20130627
  Serious: Yes (Other)
  Sender: FDA-Public Use
  Company Number: GB-RANBAXY-2012R1-60425

PATIENT
  Age: 69 Year
  Sex: Male

DRUGS (3)
  1. FLUOXETINE [Suspect]
     Indication: PRODUCT USED FOR UNKNOWN INDICATION
     Dosage: 20 mg, bid
     Route: 065
  2. FLUOXETINE [Suspect]
     Dosage: 20 mg, qd
     Route: 065
  3. SIMVASTATIN [Concomitant]
     Indication: PRODUCT USED FOR UNKNOWN INDICATION
     Dosage: 20mg in the morning and 40mg in the afternoon
     Route: 065

REACTIONS (3)
  - Depressed level of consciousness [Unknown]
  - Insomnia [Unknown]
  - Nausea [Recovering/Resolving]
